FAERS Safety Report 8011058-5 (Version None)
Quarter: 2011Q4

REPORT INFORMATION
  Report Type: 
  Country: None (occurrence: None)
  Receive Date: 20111228
  Receipt Date: 20111220
  Transmission Date: 20120403
  Serious: Yes (Death)
  Sender: FDA-Public Use
  Company Number: FR-ROCHE-1021462

PATIENT
  Age: 57 Year
  Sex: Male

DRUGS (9)
  1. ROCEPHIN [Suspect]
     Route: 042
     Dates: start: 20110610, end: 20110611
  2. FLAGYL [Suspect]
     Indication: PRODUCT USED FOR UNKNOWN INDICATION
     Dates: start: 20110529, end: 20110608
  3. SOLU-MEDROL [Suspect]
     Indication: PRODUCT USED FOR UNKNOWN INDICATION
     Route: 042
     Dates: start: 20110530, end: 20110608
  4. FOSCAVIR [Suspect]
     Indication: PRODUCT USED FOR UNKNOWN INDICATION
     Dates: start: 20110601, end: 20110612
  5. ROCEPHIN [Suspect]
     Indication: PRODUCT USED FOR UNKNOWN INDICATION
     Route: 042
     Dates: start: 20110529
  6. NOZINAN (UNITED KINGDOM) [Suspect]
     Indication: PRODUCT USED FOR UNKNOWN INDICATION
     Dates: start: 20110530, end: 20110610
  7. NEXIUM [Suspect]
     Indication: PRODUCT USED FOR UNKNOWN INDICATION
     Dates: start: 20110530, end: 20110610
  8. ACUPAN [Concomitant]
     Dates: start: 20110606, end: 20110609
  9. UMULINE [Concomitant]
     Dates: start: 20110530, end: 20110607

REACTIONS (1)
  - TOXIC EPIDERMAL NECROLYSIS [None]
